FAERS Safety Report 8827560 (Version 1)
Quarter: 2012Q4

REPORT INFORMATION
  Report Type: 
  Country: US (occurrence: US)
  Receive Date: 20121005
  Receipt Date: 20121005
  Transmission Date: 20130627
  Serious: Yes (Other)
  Sender: FDA-Public Use
  Company Number: US-ELI_LILLY_AND_COMPANY-US201209007441

PATIENT
  Sex: Female

DRUGS (1)
  1. HUMULIN REGULAR [Suspect]
     Indication: DIABETES MELLITUS
     Dosage: 0.9 DF, every hour
     Dates: start: 2008

REACTIONS (4)
  - Staphylococcal infection [Recovering/Resolving]
  - Joint injury [Recovering/Resolving]
  - Fall [Recovered/Resolved with Sequelae]
  - Off label use [Not Recovered/Not Resolved]
